FAERS Safety Report 11996353 (Version 1)
Quarter: 2016Q1

REPORT INFORMATION
  Report Type: Spontaneous
  Country: US (occurrence: US)
  Receive Date: 20160203
  Receipt Date: 20160203
  Transmission Date: 20160526
  Serious: Yes (Hospitalization)
  Sender: FDA-Public Use
  Company Number: US-OTSUKA-2016_002540

PATIENT
  Age: 41 Year
  Sex: Female

DRUGS (7)
  1. LEXAPRO [Concomitant]
     Active Substance: ESCITALOPRAM OXALATE
     Indication: PRODUCT USED FOR UNKNOWN INDICATION
     Dosage: UNK
     Route: 065
  2. REXULTI [Suspect]
     Active Substance: BREXPIPRAZOLE
     Indication: MAJOR DEPRESSION
     Dosage: 0.5 MG, DAILY
     Route: 065
     Dates: start: 20160122
  3. DEPLIN [Suspect]
     Active Substance: LEVOMEFOLATE CALCIUM
     Indication: MAJOR DEPRESSION
     Dosage: UNK
     Route: 065
  4. TOPAMAX [Concomitant]
     Active Substance: TOPIRAMATE
     Indication: MIGRAINE
     Dosage: UNK
     Route: 065
  5. WELLBUTRIN [Concomitant]
     Active Substance: BUPROPION HYDROCHLORIDE
     Indication: PRODUCT USED FOR UNKNOWN INDICATION
     Dosage: UNK
     Route: 065
  6. ADDERALL [Concomitant]
     Active Substance: AMPHETAMINE ASPARTATE\AMPHETAMINE SULFATE\DEXTROAMPHETAMINE SACCHARATE\DEXTROAMPHETAMINE SULFATE
     Indication: PRODUCT USED FOR UNKNOWN INDICATION
     Dosage: UNK
     Route: 065
  7. ZYPREXA [Suspect]
     Active Substance: OLANZAPINE
     Indication: MAJOR DEPRESSION
     Dosage: UNK
     Route: 065

REACTIONS (13)
  - Syncope [Not Recovered/Not Resolved]
  - Weight increased [Recovered/Resolved]
  - Feeling abnormal [Not Recovered/Not Resolved]
  - Eye disorder [Not Recovered/Not Resolved]
  - Dystonia [Not Recovered/Not Resolved]
  - Confusional state [Recovered/Resolved]
  - Gait disturbance [Not Recovered/Not Resolved]
  - Wrong technique in product usage process [Unknown]
  - Fatigue [Not Recovered/Not Resolved]
  - Tardive dyskinesia [Unknown]
  - Hyperphagia [Recovered/Resolved]
  - Restlessness [Not Recovered/Not Resolved]
  - Dysarthria [Not Recovered/Not Resolved]

NARRATIVE: CASE EVENT DATE: 20160123
